FAERS Safety Report 17711453 (Version 1)
Quarter: 2020Q2

REPORT INFORMATION
  Report Type: Spontaneous
  Country: US (occurrence: US)
  Receive Date: 20200425
  Receipt Date: 20200425
  Transmission Date: 20200714
  Serious: Yes (Hospitalization, Other)
  Sender: FDA-Public Use
  Company Number: None

PATIENT
  Age: 29 Year
  Sex: Female
  Weight: 121.5 kg

DRUGS (11)
  1. ARIPIPRAZOLE. [Concomitant]
     Active Substance: ARIPIPRAZOLE
  2. MAGNESIUM MALATE. [Concomitant]
     Active Substance: MAGNESIUM MALATE
  3. PINDOLOL. [Concomitant]
     Active Substance: PINDOLOL
  4. TOPIRAMATE. [Concomitant]
     Active Substance: TOPIRAMATE
  5. ESTRADIOL. [Concomitant]
     Active Substance: ESTRADIOL
  6. CLONAZEPAM. [Concomitant]
     Active Substance: CLONAZEPAM
  7. WAL FEX 24 HOUR ALLERGY [Suspect]
     Active Substance: FEXOFENADINE HYDROCHLORIDE
     Indication: MULTIPLE ALLERGIES
     Route: 048
     Dates: start: 20200321, end: 20200322
  8. LAMOTRIGINE. [Concomitant]
     Active Substance: LAMOTRIGINE
  9. VITAMIN B COMPLEX [Concomitant]
     Active Substance: CYANOCOBALAMIN\DEXPANTHENOL\NIACINAMIDE\PYRIDOXINE HYDROCHLORIDE\RIBOFLAVIN 5^-PHOSPHATE SODIUM\THIAMINE HYDROCHLORIDE\VITAMIN B COMPLEX
  10. GLUCOSAMINE HCL WITH MSM [Concomitant]
  11. VITAMIN D3 [Concomitant]
     Active Substance: CHOLECALCIFEROL

REACTIONS (11)
  - Fear [None]
  - Paranoia [None]
  - Panic attack [None]
  - Amnesia [None]
  - Fear of death [None]
  - Hallucination [None]
  - Feeling abnormal [None]
  - Crying [None]
  - Hypoaesthesia [None]
  - Loss of consciousness [None]
  - Psychotic disorder [None]

NARRATIVE: CASE EVENT DATE: 20200321
